FAERS Safety Report 5939954-0 (Version None)
Quarter: 2008Q4

REPORT INFORMATION
  Report Type: 
  Country: None (occurrence: None)
  Receive Date: 20081031
  Receipt Date: 20081031
  Transmission Date: 20090506
  Serious: Yes (Hospitalization)
  Sender: FDA-Public Use
  Company Number: None

PATIENT
  Sex: Female
  Weight: 82 kg

DRUGS (2)
  1. DACARBAZINE [Suspect]
     Indication: MALIGNANT MELANOMA
     Dosage: 1500MG IV Q21DAYS
     Route: 042
     Dates: start: 20080409, end: 20080723
  2. DASATINIB - 70MG - BRISTOL-MYERS SQUIBB [Suspect]
     Indication: MALIGNANT MELANOMA
     Dosage: 70MG ORALLY BID
     Route: 048
     Dates: start: 20080410, end: 20080810

REACTIONS (4)
  - ANAEMIA [None]
  - DISEASE PROGRESSION [None]
  - NEUTROPHIL COUNT ABNORMAL [None]
  - THROMBOCYTOPENIA [None]
